FAERS Safety Report 5710084-6 (Version None)
Quarter: 2008Q2

REPORT INFORMATION
  Report Type: 
  Country: None (occurrence: None)
  Receive Date: 20080418
  Receipt Date: 20070809
  Transmission Date: 20081010
  Serious: No
  Sender: FDA-Public Use
  Company Number: BR-ASTRAZENECA-2007UW19418

PATIENT
  Age: 30 Year
  Sex: Male

DRUGS (2)
  1. SELOZOK [Suspect]
     Indication: HEADACHE
     Route: 048
     Dates: start: 20070701, end: 20070803
  2. ANAFRANIL [Concomitant]
     Indication: ANXIETY
     Route: 048
     Dates: start: 20060101

REACTIONS (5)
  - ANXIETY [None]
  - DIZZINESS [None]
  - HEADACHE [None]
  - LOSS OF LIBIDO [None]
  - NIGHTMARE [None]
